FAERS Safety Report 8166630-9 (Version None)
Quarter: 2012Q1

REPORT INFORMATION
  Report Type: 
  Country: None (occurrence: None)
  Receive Date: 20120221
  Receipt Date: 20120207
  Transmission Date: 20120608
  Serious: Yes (Life-Threatening, Hospitalization)
  Sender: FDA-Public Use
  Company Number: TCI2012A00536

PATIENT
  Sex: Female

DRUGS (1)
  1. ACTOS [Suspect]
     Indication: DIABETES MELLITUS
     Route: 047

REACTIONS (2)
  - HAEMATURIA [None]
  - BLADDER CANCER [None]
